FAERS Safety Report 25235296 (Version 1)
Quarter: 2025Q2

REPORT INFORMATION
  Report Type: Spontaneous
  Country: US (occurrence: None)
  Receive Date: 20250424
  Receipt Date: 20250424
  Transmission Date: 20250716
  Serious: Yes (Other)
  Sender: FDA-CTU
  Company Number: None

PATIENT
  Age: 37 Year
  Sex: Female

DRUGS (10)
  1. BIOTIN [Suspect]
     Active Substance: BIOTIN
  2. BISOPROLOL FUMARATE\HYDROCHLOROTHIAZIDE [Suspect]
     Active Substance: BISOPROLOL FUMARATE\HYDROCHLOROTHIAZIDE
  3. ESTRADIOL [Suspect]
     Active Substance: ESTRADIOL
  4. FISH OIL [Suspect]
     Active Substance: FISH OIL
  5. GONAL-F RFF [Suspect]
     Active Substance: FOLLITROPIN
  6. GONAL-F RFF REDI-JECT [Suspect]
     Active Substance: FOLLITROPIN
  7. LETROZOLE [Suspect]
     Active Substance: LETROZOLE
  8. METFORMIN [Suspect]
     Active Substance: METFORMIN HYDROCHLORIDE
  9. OVIDREL [Suspect]
     Active Substance: CHORIOGONADOTROPIN ALFA
  10. PREGNYL [Suspect]
     Active Substance: CHORIOGONADOTROPIN ALFA

REACTIONS (1)
  - Biochemical pregnancy [None]

NARRATIVE: CASE EVENT DATE: 20250401
